FAERS Safety Report 13740626 (Version 1)
Quarter: 2017Q3

REPORT INFORMATION
  Report Type: Spontaneous
  Country: CN (occurrence: CN)
  Receive Date: 20170711
  Receipt Date: 20170711
  Transmission Date: 20171127
  Serious: Yes (Hospitalization, Other)
  Sender: FDA-Public Use
  Company Number: CN-PFIZER INC-2017296512

PATIENT
  Age: 45 Year
  Sex: Male
  Weight: 72 kg

DRUGS (2)
  1. AVELOX [Concomitant]
     Active Substance: MOXIFLOXACIN HYDROCHLORIDE
     Indication: CHRONIC KIDNEY DISEASE
     Dosage: 250 ML, 1X/DAY
     Route: 041
     Dates: start: 20170415, end: 20170422
  2. VFEND [Suspect]
     Active Substance: VORICONAZOLE
     Indication: FUNGAL INFECTION
     Dosage: 200 MG, 2X/DAY
     Route: 048
     Dates: start: 20170421, end: 20170422

REACTIONS (6)
  - Blood pressure increased [Unknown]
  - Pyrexia [Unknown]
  - Mental disorder [Unknown]
  - Fatigue [Unknown]
  - Dyspnoea [Unknown]
  - Listless [Unknown]

NARRATIVE: CASE EVENT DATE: 20170422
